FAERS Safety Report 5177564-6 (Version None)
Quarter: 2006Q4

REPORT INFORMATION
  Report Type: 
  Country: None (occurrence: None)
  Receive Date: 20061218
  Receipt Date: 20061211
  Transmission Date: 20070319
  Serious: Yes (Hospitalization, Other)
  Sender: FDA-Public Use
  Company Number: HK-ROXANE LABORATORIES, INC-2006-BP-14348RO

PATIENT
  Age: 55 Year
  Sex: Female

DRUGS (9)
  1. CYCLOPHOSPHAMIDE [Suspect]
     Indication: BREAST CANCER
     Dosage: 600 MG/M2 X 1 DOSE
  2. CYCLOPHOSPHAMIDE [Suspect]
     Dosage: 20% DOSE REDUCTION X 1 DOSE
     Route: 042
  3. CYCLOPHOSPHAMIDE [Suspect]
     Dosage: 33% DOSE REDUCTION X 2 CYCLES
     Route: 042
  4. METHOTREXATE [Suspect]
     Indication: BREAST CANCER
  5. DOXORUBICIN HCL [Suspect]
     Indication: BREAST CANCER
  6. FLUOROURACIL [Suspect]
     Indication: BREAST CANCER
  7. DOCETAXEL [Suspect]
     Indication: BREAST CANCER
  8. BETEL QUID [Suspect]
  9. NEUPOGEN [Concomitant]
     Indication: BREAST CANCER

REACTIONS (11)
  - ABDOMINAL PAIN [None]
  - ANAL DISCOMFORT [None]
  - CARDIAC ENZYMES INCREASED [None]
  - CARDIAC FAILURE [None]
  - DYSURIA [None]
  - FURUNCLE [None]
  - MUCOSAL INFLAMMATION [None]
  - NEUTROPHIL COUNT DECREASED [None]
  - OEDEMA PERIPHERAL [None]
  - ORAL PAIN [None]
  - VAGINAL INFLAMMATION [None]
